FAERS Safety Report 13517043 (Version 1)
Quarter: 2017Q2

REPORT INFORMATION
  Report Type: Spontaneous
  Country: US (occurrence: US)
  Receive Date: 20170505
  Receipt Date: 20170505
  Transmission Date: 20170830
  Serious: Yes (Hospitalization)
  Sender: FDA-Public Use
  Company Number: None

PATIENT
  Age: 86 Year
  Sex: Male
  Weight: 57 kg

DRUGS (11)
  1. LIPITOR [Concomitant]
     Active Substance: ATORVASTATIN CALCIUM
  2. ATROVENT [Concomitant]
     Active Substance: IPRATROPIUM BROMIDE
  3. KLONOPIN [Suspect]
     Active Substance: CLONAZEPAM
  4. CLONAZEPAM. [Concomitant]
     Active Substance: CLONAZEPAM
  5. OXYCODONE [Suspect]
     Active Substance: OXYCODONE
     Indication: ARTHRITIS
     Dosage: FREQUENCY - Q4HRS PRN?DATES OF USE - CHRONIC
     Route: 048
  6. ZOLOFT [Suspect]
     Active Substance: SERTRALINE HYDROCHLORIDE
     Indication: DEPRESSION
     Dosage: FREQUENCY - DAILY PRN?DATES OF USE - CHRONIC
     Route: 048
  7. COREG [Concomitant]
     Active Substance: CARVEDILOL
  8. LASIX [Concomitant]
     Active Substance: FUROSEMIDE
  9. ALBUTEROL. [Concomitant]
     Active Substance: ALBUTEROL
  10. HYDRALAZINE [Concomitant]
     Active Substance: HYDRALAZINE HYDROCHLORIDE
  11. PROTONIX [Concomitant]
     Active Substance: PANTOPRAZOLE SODIUM

REACTIONS (8)
  - Asthenia [None]
  - Anaemia [None]
  - Hypotension [None]
  - Bradycardia [None]
  - Cardiac failure [None]
  - Drug effect decreased [None]
  - Lethargy [None]
  - Hypoxia [None]

NARRATIVE: CASE EVENT DATE: 20150923
